FAERS Safety Report 6213132-2 (Version None)
Quarter: 2009Q2

REPORT INFORMATION
  Report Type: 
  Country: None (occurrence: None)
  Receive Date: 20090601
  Receipt Date: 20090601
  Transmission Date: 20091009
  Serious: Yes (Hospitalization)
  Sender: FDA-Public Use
  Company Number: None

PATIENT
  Age: 62 Year
  Sex: Male

DRUGS (1)
  1. IRINOTECAN HCL [Suspect]
     Indication: COLON CANCER
     Dosage: 330 MG OTHER IV
     Route: 042
     Dates: start: 20090212, end: 20090226

REACTIONS (5)
  - ANAEMIA [None]
  - FEBRILE NEUTROPENIA [None]
  - HYPOCHLORAEMIA [None]
  - HYPONATRAEMIA [None]
  - TACHYCARDIA [None]
